FAERS Safety Report 21512773 (Version 3)
Quarter: 2022Q4

REPORT INFORMATION
  Report Type: Spontaneous
  Country: US (occurrence: US)
  Receive Date: 20221027
  Receipt Date: 20221223
  Transmission Date: 20230112
  Serious: Yes (Other)
  Sender: FDA-Public Use
  Company Number: US-SA-SAC20221026000469

PATIENT
  Age: 78 Year
  Sex: Female

DRUGS (1)
  1. DUPIXENT [Suspect]
     Active Substance: DUPILUMAB
     Indication: Dermatitis atopic
     Dosage: 300 MG, QOW
     Route: 058
     Dates: start: 20220426

REACTIONS (8)
  - Chronic kidney disease [Unknown]
  - Cardiac failure congestive [Unknown]
  - Cough [Unknown]
  - Malaise [Unknown]
  - Aphonia [Unknown]
  - Fluid retention [Unknown]
  - Dyspnoea [Unknown]
  - Weight increased [Unknown]

NARRATIVE: CASE EVENT DATE: 20220101
